FAERS Safety Report 9018385 (Version 1)
Quarter: 2013Q1

REPORT INFORMATION
  Report Type: Spontaneous
  Country: US (occurrence: None)
  Receive Date: 20130111
  Receipt Date: 20130111
  Transmission Date: 20140127
  Serious: Yes (Hospitalization)
  Sender: FDA-Public Use
  Company Number: None

PATIENT
  Age: 48 Year
  Sex: Female
  Weight: 78 kg

DRUGS (17)
  1. COREG [Suspect]
     Dosage: 3.12 MG BID PO
     Route: 048
  2. ZANAFLEX [Suspect]
     Dosage: 2MG PO QAM/4MG PO QPM
     Route: 048
  3. MIDODRINE [Suspect]
     Dosage: 10MG TID PO
     Route: 048
  4. TRAZODONE [Concomitant]
  5. PAXIL [Concomitant]
  6. CREON [Concomitant]
  7. ZOFRAN [Concomitant]
  8. SINGULAIR [Concomitant]
  9. LAMICTAL [Concomitant]
  10. TORADOL [Concomitant]
  11. ADVAIR [Concomitant]
  12. FLUDROCORTISONE [Concomitant]
  13. KLONOPIN [Concomitant]
  14. MAXALT [Concomitant]
  15. PROTONIX [Concomitant]
  16. BUSPAR [Concomitant]
  17. REQUIP [Concomitant]

REACTIONS (2)
  - Syncope [None]
  - Sinus bradycardia [None]
